FAERS Safety Report 4836841-6 (Version None)
Quarter: 2005Q4

REPORT INFORMATION
  Report Type: 
  Country: None (occurrence: None)
  Receive Date: 20051123
  Receipt Date: 20050608
  Transmission Date: 20060501
  Serious: Yes (Other)
  Sender: FDA-Public Use
  Company Number: JP-ABBOTT-05P-087-0302636-00

PATIENT
  Age: 74 Year
  Sex: Male

DRUGS (6)
  1. LIPIDIL [Suspect]
     Indication: HYPERLIPIDAEMIA
     Route: 048
     Dates: start: 20050409, end: 20050522
  2. BENIDIPINE HYDROCHLORIDE [Concomitant]
     Indication: DRUG USE FOR UNKNOWN INDICATION
     Dates: start: 20020319
  3. TAMSULOSIN HYDROCHLORIDE [Concomitant]
     Indication: DRUG USE FOR UNKNOWN INDICATION
     Dates: start: 20031117
  4. ACETYLSALICYLIC ACID [Concomitant]
     Indication: DRUG USE FOR UNKNOWN INDICATION
     Dates: start: 20020408
  5. BROTIZOLAM [Concomitant]
     Indication: DRUG USE FOR UNKNOWN INDICATION
     Dates: start: 20020604
  6. ENALAPRIL [Concomitant]
     Indication: DRUG USE FOR UNKNOWN INDICATION
     Dates: start: 20020319

REACTIONS (9)
  - CHROMATURIA [None]
  - CONJUNCTIVITIS [None]
  - DECREASED APPETITE [None]
  - FEELING HOT [None]
  - JAUNDICE [None]
  - LIVER DISORDER [None]
  - MALAISE [None]
  - NAUSEA [None]
  - PRURITUS [None]
